FAERS Safety Report 9667662 (Version 1)
Quarter: 2013Q4

REPORT INFORMATION
  Report Type: Spontaneous
  Country: US (occurrence: US)
  Receive Date: 20131101
  Receipt Date: 20131101
  Transmission Date: 20140711
  Serious: No
  Sender: FDA-Public Use
  Company Number: US-SAVIENT-2012S1000094

PATIENT
  Sex: Male

DRUGS (4)
  1. KRYSTEXXA INJECTION [Suspect]
     Indication: GOUT
     Route: 042
     Dates: start: 20120516, end: 201208
  2. CORTICOSTEROIDS [Concomitant]
     Indication: PREMEDICATION
     Dates: start: 20120516, end: 201208
  3. ANTIHISTAMINES [Concomitant]
     Indication: PREMEDICATION
     Dates: start: 20120516, end: 201208
  4. COLCHICINE [Concomitant]
     Indication: GOUT

REACTIONS (1)
  - Therapeutic response decreased [Unknown]
